FAERS Safety Report 8676464 (Version 2)
Quarter: 2013Q4

REPORT INFORMATION
  Report Type: Spontaneous
  Country: US (occurrence: US)
  Receive Date: 20120721
  Receipt Date: 20131101
  Transmission Date: 20140711
  Serious: No
  Sender: FDA-Public Use
  Company Number: US-009507513-1207USA007203

PATIENT
  Sex: 0

DRUGS (2)
  1. MIRALAX [Suspect]
     Indication: CONSTIPATION
     Dosage: UNK, BID
     Route: 048
  2. MIRALAX [Suspect]
     Indication: MEDICAL OBSERVATION

REACTIONS (1)
  - Prescribed overdose [Unknown]
